FAERS Safety Report 9644984 (Version 1)
Quarter: 2013Q4

REPORT INFORMATION
  Report Type: Spontaneous
  Country: US (occurrence: US)
  Receive Date: 20131025
  Receipt Date: 20131025
  Transmission Date: 20140711
  Serious: No
  Sender: FDA-Public Use
  Company Number: US-PFIZER INC-2013305969

PATIENT
  Age: 61 Year
  Sex: 0
  Weight: 64.85 kg

DRUGS (2)
  1. SOLU-MEDROL [Suspect]
     Indication: DISEASE PROGRESSION
     Dosage: 1 G, EVERY OTHER WEEK
     Route: 042
  2. SOLU-MEDROL [Suspect]

REACTIONS (2)
  - Product quality issue [Unknown]
  - Feeling abnormal [Not Recovered/Not Resolved]
